FAERS Safety Report 8550552-5 (Version None)
Quarter: 2012Q3

REPORT INFORMATION
  Report Type: 
  Country: None (occurrence: None)
  Receive Date: 20120730
  Receipt Date: 20120716
  Transmission Date: 20120928
  Serious: Yes (Other)
  Sender: FDA-Public Use
  Company Number: DE-MYLANLABS-2012S1014482

PATIENT
  Age: 26 Year
  Sex: Female
  Weight: 100 kg

DRUGS (3)
  1. LEVOTHYROXINE SODIUM [Concomitant]
     Indication: HYPOTHYROIDISM
     Dosage: 75 [?G/D ]
     Route: 048
  2. FEMIBION [Concomitant]
     Indication: PROPHYLAXIS OF NEURAL TUBE DEFECT
     Dosage: 0.4 [MG/D ]
     Route: 048
  3. VENLAFAXINE [Suspect]
     Indication: ANXIETY DISORDER
     Dosage: 75 [MG/D ]
     Route: 048
     Dates: start: 20111125, end: 20120419

REACTIONS (3)
  - OLIGOHYDRAMNIOS [None]
  - GASTROOESOPHAGEAL REFLUX DISEASE [None]
  - MATERNAL EXPOSURE DURING PREGNANCY [None]
